FAERS Safety Report 14344133 (Version 2)
Quarter: 2018Q1

REPORT INFORMATION
  Report Type: Spontaneous
  Country: FR (occurrence: FR)
  Receive Date: 20180102
  Receipt Date: 20180220
  Transmission Date: 20180509
  Serious: Yes (Other)
  Sender: FDA-Public Use
  Company Number: FR-BAUSCH-BL-2017-035710

PATIENT
  Age: 4 Year
  Sex: Female

DRUGS (19)
  1. VINCRISTINE [Suspect]
     Active Substance: VINCRISTINE
     Dosage: (D8, D29,D64)
     Route: 065
     Dates: start: 20170803, end: 20170928
  2. INEXIUM                            /01479302/ [Concomitant]
     Active Substance: ESOMEPRAZOLE MAGNESIUM
     Indication: HYPERBILIRUBINAEMIA
  3. METHOTREXATE. [Suspect]
     Active Substance: METHOTREXATE
     Dosage: (D2, D30, D58)
     Route: 037
     Dates: start: 20170728, end: 20170922
  4. METHOTREXATE. [Suspect]
     Active Substance: METHOTREXATE
     Dosage: (CUMULATIVE DOSAGE: 1424 MG)
     Route: 048
     Dates: start: 20170803, end: 20170914
  5. 6-MERCAPTOPURINE MONOHYDRATE [Suspect]
     Active Substance: MERCAPTOPURINE
     Route: 048
     Dates: start: 20170824, end: 20170913
  6. METHOTREXATE. [Suspect]
     Active Substance: METHOTREXATE
     Indication: ACUTE LYMPHOCYTIC LEUKAEMIA
     Route: 048
  7. DEXAMETHASONE. [Suspect]
     Active Substance: DEXAMETHASONE
     Indication: ACUTE LYMPHOCYTIC LEUKAEMIA
     Route: 065
     Dates: start: 20170727, end: 20170731
  8. VINCRISTINE [Suspect]
     Active Substance: VINCRISTINE
     Indication: ACUTE LYMPHOCYTIC LEUKAEMIA
     Dosage: (D1, D36,D57)
     Route: 065
     Dates: start: 20170727, end: 20170921
  9. CEFTAZIDIME. [Concomitant]
     Active Substance: CEFTAZIDIME
     Indication: HYPERBILIRUBINAEMIA
  10. BACTRIM [Concomitant]
     Active Substance: SULFAMETHOXAZOLE\TRIMETHOPRIM
     Indication: HYPERBILIRUBINAEMIA
  11. ADRIGYL [Concomitant]
     Indication: HYPERBILIRUBINAEMIA
  12. FUNGIZONE [Concomitant]
     Active Substance: AMPHOTERICIN B
     Indication: HYPERBILIRUBINAEMIA
  13. VANCOMYCIN [Concomitant]
     Active Substance: VANCOMYCIN
     Indication: HYPERBILIRUBINAEMIA
  14. DEXAMETHASONE. [Suspect]
     Active Substance: DEXAMETHASONE
     Route: 048
     Dates: start: 20170921, end: 20170925
  15. 6-MERCAPTOPURINE MONOHYDRATE [Suspect]
     Active Substance: MERCAPTOPURINE
     Indication: ACUTE LYMPHOCYTIC LEUKAEMIA
     Route: 048
     Dates: start: 20170727, end: 20170816
  16. DEXAMETHASONE. [Suspect]
     Active Substance: DEXAMETHASONE
     Route: 065
     Dates: start: 20170824, end: 20170828
  17. ONCASPAR [Suspect]
     Active Substance: PEGASPARGASE
     Indication: ACUTE LYMPHOCYTIC LEUKAEMIA
     Dosage: (D8,D36, D64), 45000 IU
     Route: 042
     Dates: start: 20170803, end: 20170928
  18. DOLIPRANE [Concomitant]
     Active Substance: ACETAMINOPHEN
     Indication: HYPERBILIRUBINAEMIA
  19. DECTANCYL [Concomitant]
     Active Substance: DEXAMETHASONE
     Indication: HYPERBILIRUBINAEMIA

REACTIONS (2)
  - Hyperbilirubinaemia [Recovered/Resolved]
  - Febrile bone marrow aplasia [Recovered/Resolved]

NARRATIVE: CASE EVENT DATE: 20170921
